FAERS Safety Report 9326869 (Version 2)
Quarter: 2013Q3

REPORT INFORMATION
  Report Type: Spontaneous
  Country: US (occurrence: US)
  Receive Date: 20130604
  Receipt Date: 20130708
  Transmission Date: 20140515
  Serious: No
  Sender: FDA-Public Use
  Company Number: US-AMGEN-USASP2013037414

PATIENT
  Age: 59 Year
  Sex: Female
  Weight: 93.42 kg

DRUGS (4)
  1. ENBREL [Suspect]
     Indication: RHEUMATOID ARTHRITIS
     Dosage: 50 MG, QWK
     Route: 058
     Dates: start: 20130521
  2. SYNTHROID [Concomitant]
     Indication: HYPOTHYROIDISM
     Dosage: 25 MG, QD
     Route: 048
  3. TRAZODONE [Concomitant]
     Indication: INSOMNIA
     Dosage: 50 MG 1/2 HS
     Route: 048
  4. TRAMADOL [Concomitant]
     Indication: PAIN
     Dosage: 50 MG, 1-2 DAILY PRN
     Route: 048
     Dates: start: 2011

REACTIONS (5)
  - Malaise [Recovered/Resolved]
  - Abdominal distension [Recovered/Resolved]
  - Flatulence [Recovered/Resolved]
  - Abdominal pain upper [Recovered/Resolved]
  - Gastroenteritis [Recovered/Resolved]
